FAERS Safety Report 10647919 (Version 1)
Quarter: 2014Q4

REPORT INFORMATION
  Report Type: Spontaneous
  Country: US (occurrence: None)
  Receive Date: 20141211
  Receipt Date: 20141211
  Transmission Date: 20150529
  Serious: Yes (Other)
  Sender: FDA-Public Use
  Company Number: None

PATIENT
  Age: 59 Year
  Sex: Female

DRUGS (1)
  1. FORTEO [Suspect]
     Active Substance: TERIPARATIDE
     Indication: OSTEOPOROSIS
     Dosage: DOSE FORM: INJECTABLE, STRENGTH: 600MCG, FREQUENCY: EVERY DAY, ROUTE: SUBCUTANEOUS 057
     Route: 058

REACTIONS (3)
  - Thirst [None]
  - Urine abnormality [None]
  - Urine phosphorus increased [None]

NARRATIVE: CASE EVENT DATE: 20141009
